FAERS Safety Report 12345782 (Version 2)
Quarter: 2018Q1

REPORT INFORMATION
  Report Type: Spontaneous
  Country: US (occurrence: US)
  Receive Date: 20160509
  Receipt Date: 20180316
  Transmission Date: 20180508
  Serious: Yes (Other)
  Sender: FDA-Public Use
  Company Number: US-ASTRAZENECA-2016SE46968

PATIENT
  Sex: Male
  Weight: 81.6 kg

DRUGS (7)
  1. OXYCONTIN [Concomitant]
     Active Substance: OXYCODONE HYDROCHLORIDE
     Indication: BACK PAIN
     Dates: start: 20160426
  2. MOVANTIK [Suspect]
     Active Substance: NALOXEGOL OXALATE
     Indication: CONSTIPATION PROPHYLAXIS
     Dosage: 25.0MG UNKNOWN
     Route: 048
     Dates: start: 201706, end: 201712
  3. MOVANTIK [Suspect]
     Active Substance: NALOXEGOL OXALATE
     Indication: CONSTIPATION PROPHYLAXIS
     Dosage: 25.0MG UNKNOWN
     Route: 048
     Dates: start: 20160426, end: 20160426
  4. OXYCONTIN [Concomitant]
     Active Substance: OXYCODONE HYDROCHLORIDE
     Indication: BACK PAIN
     Dosage: 80 MG EVERY FOUR TO SIX HOURS
     Dates: start: 1972
  5. AMITIZA [Concomitant]
     Active Substance: LUBIPROSTONE
     Indication: CONSTIPATION
     Dates: start: 201712
  6. OXYGEN. [Concomitant]
     Active Substance: OXYGEN
     Dosage: UNKNOWN
     Route: 045
  7. FLOVENT [Concomitant]
     Active Substance: FLUTICASONE PROPIONATE
     Dosage: UNKNOWN
     Route: 055

REACTIONS (15)
  - Sedation [Unknown]
  - Lethargy [Unknown]
  - Diarrhoea [Unknown]
  - Rhinorrhoea [Unknown]
  - Macule [Unknown]
  - Memory impairment [Unknown]
  - Hypokinesia [Unknown]
  - Rash erythematous [Unknown]
  - Lacrimation increased [Unknown]
  - Papule [Unknown]
  - Insurance issue [Unknown]
  - Serum sickness [Unknown]
  - Malaise [Unknown]
  - Rash pruritic [Unknown]
  - Dyspnoea [Unknown]
